FAERS Safety Report 6598640-7 (Version None)
Quarter: 2010Q1

REPORT INFORMATION
  Report Type: 
  Country: None (occurrence: None)
  Receive Date: 20100219
  Receipt Date: 20100219
  Transmission Date: 20100710
  Serious: Yes (Death, Hospitalization)
  Sender: FDA-Public Use
  Company Number: None

PATIENT
  Sex: Male
  Weight: 63.6 kg

DRUGS (4)
  1. BEVACIZUMAB 25 MG/ML (400MG/VIAL-16 ML) GENENTECH, INC. [Suspect]
     Indication: LUNG NEOPLASM MALIGNANT
     Dosage: 15MG/KG EVERY 21 DAYS 042: IV INFUSION
     Route: 042
     Dates: start: 20090828, end: 20091210
  2. BEVACIZUMAB 25 MG/ML (400MG/VIAL-16 ML) GENENTECH, INC. [Suspect]
  3. ERLOTINIB [Suspect]
     Indication: LUNG NEOPLASM MALIGNANT
     Dosage: 150 MG DAILY 047: ORAL
     Route: 048
     Dates: start: 20090828, end: 20090918
  4. ERLOTINIB 100 MG TAB (30 TAB/BOTTLE) GENENTECH, INC. [Suspect]
     Indication: LUNG NEOPLASM MALIGNANT
     Dosage: 100 MG, DAILY, 047: ORAL
     Route: 048
     Dates: start: 20091001, end: 20091228

REACTIONS (5)
  - CONFUSIONAL STATE [None]
  - DEHYDRATION [None]
  - MALIGNANT NEOPLASM PROGRESSION [None]
  - MENTAL STATUS CHANGES [None]
  - WHITE BLOOD CELL COUNT INCREASED [None]
